FAERS Safety Report 6734549-3 (Version None)
Quarter: 2010Q2

REPORT INFORMATION
  Report Type: 
  Country: None (occurrence: None)
  Receive Date: 20100520
  Receipt Date: 20100518
  Transmission Date: 20101027
  Serious: Yes (Death)
  Sender: FDA-Public Use
  Company Number: PL-ROCHE-701360

PATIENT
  Sex: Male
  Weight: 84 kg

DRUGS (9)
  1. AVASTIN [Suspect]
     Dosage: FREQUECY: 1 ADMINISTRATION (90 MIN)
     Route: 042
     Dates: start: 20100422, end: 20100422
  2. IRINOTECAN [Concomitant]
     Dosage: FREQUENCY 1 X DAY (2 H)
     Route: 042
     Dates: start: 20100422, end: 20100422
  3. ZOFRAN [Concomitant]
     Indication: ANTIEMETIC SUPPORTIVE CARE
     Route: 042
     Dates: start: 20100422, end: 20100422
  4. DEXAMETHASONE [Concomitant]
     Route: 042
     Dates: start: 20100422
  5. ATROPIN [Concomitant]
     Route: 058
  6. AUGMENTIN '125' [Concomitant]
     Dates: start: 20100422, end: 20100422
  7. ZANTAC [Concomitant]
     Indication: PROPHYLAXIS
     Dosage: FREQUENCY: EVERY 12 HOUR
     Route: 040
     Dates: start: 20100422
  8. LEUCOVORIN CALCIUM [Concomitant]
  9. FLUOROURACIL [Concomitant]

REACTIONS (5)
  - BLOOD PRESSURE INCREASED [None]
  - CARDIOVASCULAR DISORDER [None]
  - COR PULMONALE [None]
  - DYSPNOEA [None]
  - LIVIDITY [None]
